FAERS Safety Report 19614109 (Version 1)
Quarter: 2021Q3

REPORT INFORMATION
  Report Type: Spontaneous
  Country: US (occurrence: US)
  Receive Date: 20210726
  Receipt Date: 20210726
  Transmission Date: 20211014
  Serious: No
  Sender: FDA-Public Use
  Company Number: None

PATIENT
  Age: 60 Year
  Sex: Female

DRUGS (2)
  1. XELODA [Suspect]
     Active Substance: CAPECITABINE
     Indication: BREAST CANCER FEMALE
     Route: 048
     Dates: start: 201905
  2. TUKYSA [Concomitant]
     Active Substance: TUCATINIB

REACTIONS (5)
  - Skin exfoliation [None]
  - Brain neoplasm [None]
  - Diarrhoea [None]
  - Metastases to bone [None]
  - Breast cancer metastatic [None]

NARRATIVE: CASE EVENT DATE: 20210726
